FAERS Safety Report 20486578 (Version 1)
Quarter: 2022Q1

REPORT INFORMATION
  Report Type: Spontaneous
  Country: US (occurrence: US)
  Receive Date: 20220217
  Receipt Date: 20220217
  Transmission Date: 20220424
  Serious: No
  Sender: FDA-Public Use
  Company Number: US-ELI_LILLY_AND_COMPANY-US202202006920

PATIENT
  Age: 74 Year
  Sex: Male

DRUGS (8)
  1. HUMALOG MIX75/25 [Suspect]
     Active Substance: INSULIN LISPRO
     Indication: Diabetes mellitus
     Dosage: 40 U, UNKNOWN
     Route: 065
     Dates: start: 2002
  2. HUMALOG MIX75/25 [Suspect]
     Active Substance: INSULIN LISPRO
     Indication: Diabetes mellitus
     Dosage: 40 U, UNKNOWN
     Route: 065
     Dates: start: 2002
  3. HUMALOG MIX75/25 [Suspect]
     Active Substance: INSULIN LISPRO
     Dosage: 15 U, UNKNOWN
     Route: 065
     Dates: start: 2002
  4. HUMALOG MIX75/25 [Suspect]
     Active Substance: INSULIN LISPRO
     Dosage: 15 U, UNKNOWN
     Route: 065
     Dates: start: 2002
  5. HUMALOG MIX75/25 [Suspect]
     Active Substance: INSULIN LISPRO
     Dosage: UNK UNK, UNKNOWN
     Route: 065
     Dates: start: 2002
  6. NOVOLOG [Concomitant]
     Active Substance: INSULIN ASPART
     Indication: Diabetes mellitus
     Dosage: UNK UNK, UNKNOWN
     Route: 065
  7. ASPIRIN [Concomitant]
     Active Substance: ASPIRIN
     Indication: Product used for unknown indication
     Dosage: 81 MG, UNKNOWN (LOW)
     Route: 065
  8. LANTUS [Concomitant]
     Active Substance: INSULIN GLARGINE
     Indication: Product used for unknown indication

REACTIONS (12)
  - Feeling abnormal [Unknown]
  - Fall [Unknown]
  - Dizziness [Unknown]
  - Back pain [Unknown]
  - Heart rate increased [Unknown]
  - Dizziness [Unknown]
  - Abdominal pain upper [Unknown]
  - Pain in extremity [Unknown]
  - Injection site pain [Unknown]
  - Back pain [Unknown]
  - Sinusitis [Unknown]
  - Product dose omission issue [Unknown]

NARRATIVE: CASE EVENT DATE: 20220213
